FAERS Safety Report 4971393-1 (Version None)
Quarter: 2006Q2

REPORT INFORMATION
  Report Type: 
  Country: None (occurrence: None)
  Receive Date: 20060406
  Receipt Date: 20060320
  Transmission Date: 20061013
  Serious: Yes (Disabling)
  Sender: FDA-Public Use
  Company Number: CH200603005551

PATIENT
  Age: 52 Year
  Sex: Male

DRUGS (2)
  1. CIALIS [Suspect]
     Indication: ERECTILE DYSFUNCTION
     Dosage: 20 MG ORAL
     Route: 048
  2. LOMIR SRO/SWE/(ISRADIPINE) [Concomitant]

REACTIONS (3)
  - CATARACT [None]
  - OCULAR HYPERAEMIA [None]
  - VISION BLURRED [None]
